FAERS Safety Report 22619681 (Version 1)
Quarter: 2023Q2

REPORT INFORMATION
  Report Type: Spontaneous
  Country: RU (occurrence: RU)
  Receive Date: 20230620
  Receipt Date: 20230620
  Transmission Date: 20230721
  Serious: Yes (Other)
  Sender: FDA-Public Use
  Company Number: RU-AstraZeneca-2023A135128

PATIENT

DRUGS (1)
  1. METOPROLOL SUCCINATE [Suspect]
     Active Substance: METOPROLOL SUCCINATE
     Indication: Ventricular arrhythmia
     Route: 048

REACTIONS (4)
  - Vascular stenosis [Unknown]
  - Cardiac failure chronic [Unknown]
  - Oedema [Unknown]
  - Off label use [Not Recovered/Not Resolved]
